FAERS Safety Report 19647184 (Version 3)
Quarter: 2021Q3

REPORT INFORMATION
  Report Type: Spontaneous
  Country: BR (occurrence: BR)
  Receive Date: 20210802
  Receipt Date: 20210817
  Transmission Date: 20211014
  Serious: Yes (Other)
  Sender: FDA-Public Use
  Company Number: NVSC2021BR169453

PATIENT
  Age: 43 Year
  Sex: Male
  Weight: 110 kg

DRUGS (2)
  1. COSENTYX [Suspect]
     Active Substance: SECUKINUMAB
     Indication: PSORIATIC ARTHROPATHY
     Dosage: 300 MG, QMO (2 AMPOULES)
     Route: 058
     Dates: start: 201811, end: 20210412
  2. COSENTYX [Suspect]
     Active Substance: SECUKINUMAB
     Indication: ERYTHRODERMIC PSORIASIS

REACTIONS (11)
  - Torticollis [Recovering/Resolving]
  - Autoimmune arthritis [Recovering/Resolving]
  - Insomnia [Recovering/Resolving]
  - Spinal pain [Recovering/Resolving]
  - Arthralgia [Recovering/Resolving]
  - Rebound psoriasis [Not Recovered/Not Resolved]
  - Pain [Recovering/Resolving]
  - Skin disorder [Unknown]
  - Back pain [Recovering/Resolving]
  - Dysstasia [Recovering/Resolving]
  - Pain in extremity [Recovering/Resolving]

NARRATIVE: CASE EVENT DATE: 202107
